FAERS Safety Report 7945443-4 (Version None)
Quarter: 2011Q4

REPORT INFORMATION
  Report Type: 
  Country: None (occurrence: None)
  Receive Date: 20111129
  Receipt Date: 20111115
  Transmission Date: 20120403
  Serious: Yes (Congenital Anomaly)
  Sender: FDA-Public Use
  Company Number: ES-ELI_LILLY_AND_COMPANY-EWC980901587

PATIENT

DRUGS (4)
  1. FIBRATES [Concomitant]
     Route: 064
  2. FIBRATES [Concomitant]
     Route: 064
  3. HUMALOG [Suspect]
     Dosage: UNK, UNKNOWN
     Route: 064
     Dates: end: 19971126
  4. HUMALOG [Suspect]
     Indication: TYPE 1 DIABETES MELLITUS
     Dosage: UNK, UNKNOWN
     Route: 064
     Dates: end: 19971126

REACTIONS (2)
  - CONGENITAL CENTRAL NERVOUS SYSTEM ANOMALY [None]
  - FOETAL EXPOSURE DURING PREGNANCY [None]
